FAERS Safety Report 13683121 (Version 3)
Quarter: 2018Q4

REPORT INFORMATION
  Report Type: Spontaneous
  Country: US (occurrence: US)
  Receive Date: 20170623
  Receipt Date: 20181129
  Transmission Date: 20190204
  Serious: Yes (Hospitalization, Other)
  Sender: FDA-Public Use
  Company Number: US-PFIZER INC-2017270952

PATIENT
  Age: 63 Year
  Sex: Male
  Weight: 119 kg

DRUGS (1)
  1. LYRICA [Suspect]
     Active Substance: PREGABALIN
     Indication: NEUROPATHY PERIPHERAL
     Dosage: 100MG CAPSULES TWICE A DAY BY MOUTH
     Route: 048

REACTIONS (11)
  - Contusion [Not Recovered/Not Resolved]
  - Rib fracture [Not Recovered/Not Resolved]
  - Nasal injury [Not Recovered/Not Resolved]
  - Limb discomfort [Unknown]
  - Pneumothorax [Not Recovered/Not Resolved]
  - Ligament injury [Unknown]
  - Road traffic accident [Unknown]
  - Loss of consciousness [Unknown]
  - Haemothorax [Not Recovered/Not Resolved]
  - Clavicle fracture [Not Recovered/Not Resolved]
  - Blood glucose decreased [Unknown]

NARRATIVE: CASE EVENT DATE: 20170403
